FAERS Safety Report 10466389 (Version 2)
Quarter: 2014Q4

REPORT INFORMATION
  Report Type: Spontaneous
  Country: US (occurrence: US)
  Receive Date: 20140922
  Receipt Date: 20141013
  Transmission Date: 20150528
  Serious: Yes (Hospitalization, Other)
  Sender: FDA-Public Use
  Company Number: US-AUROBINDO-AUR-APL-2014-10028

PATIENT
  Sex: Male

DRUGS (3)
  1. TRAMADOL HYDROCHLORIDE TABLETS USP 50 MG [Suspect]
     Active Substance: TRAMADOL HYDROCHLORIDE
     Indication: PRODUCT USED FOR UNKNOWN INDICATION
     Dosage: ONE OR TWO TABLETS, 3 TIMES A DAY
     Route: 065
  2. MELOXICAM TABLETS 15 MG [Suspect]
     Active Substance: MELOXICAM
     Indication: PRODUCT USED FOR UNKNOWN INDICATION
     Dosage: 1 DF, ONCE A DAY
     Route: 065
  3. METHOTREXATE SODIUM. [Suspect]
     Active Substance: METHOTREXATE SODIUM
     Indication: PRODUCT USED FOR UNKNOWN INDICATION
     Dosage: 1 ML, EVERY WEEK
     Route: 065

REACTIONS (3)
  - Acute kidney injury [Unknown]
  - Road traffic accident [Unknown]
  - Renal disorder [Unknown]
